FAERS Safety Report 14351947 (Version 11)
Quarter: 2019Q4

REPORT INFORMATION
  Report Type: Report from Study
  Country: HK (occurrence: HK)
  Receive Date: 20180104
  Receipt Date: 20191127
  Transmission Date: 20200122
  Serious: Yes (Hospitalization, Other)
  Sender: FDA-Public Use
  Company Number: PHHY2017HK177156

PATIENT
  Age: 60 Year
  Sex: Male

DRUGS (44)
  1. PREDNISOLONE. [Concomitant]
     Active Substance: PREDNISOLONE
     Dosage: 10 MG, (7.5+2.5) QD
     Route: 048
     Dates: start: 20171012, end: 20171012
  2. CYCLOSPORIN A [Concomitant]
     Active Substance: CYCLOSPORINE
     Dosage: 100 MG, BID
     Route: 048
     Dates: start: 20171101, end: 20171127
  3. ATENOLOL. [Concomitant]
     Active Substance: ATENOLOL
     Indication: PRODUCT USED FOR UNKNOWN INDICATION
     Dosage: 50 MG, QD (FOR ONE WEEK)
     Route: 048
     Dates: start: 20150811
  4. METFORMIN HCL [Concomitant]
     Active Substance: METFORMIN HYDROCHLORIDE
     Dosage: 500 MG, BID
     Route: 048
     Dates: start: 20161122
  5. ISOPHANE INSULIN [Concomitant]
     Active Substance: INSULIN NOS
     Indication: DIABETES MELLITUS
     Dosage: 22 U, QD
     Route: 058
     Dates: start: 20170207
  6. LINAGLIPTIN [Concomitant]
     Active Substance: LINAGLIPTIN
     Indication: DIABETES MELLITUS
     Dosage: 5 MG, QD
     Route: 048
     Dates: start: 20171014, end: 20171107
  7. REVOLADE [Suspect]
     Active Substance: ELTROMBOPAG
     Indication: IMMUNE THROMBOCYTOPENIC PURPURA
     Dosage: 25 MG, QD
     Route: 048
     Dates: start: 20170606, end: 20170831
  8. PREDNISOLONE. [Concomitant]
     Active Substance: PREDNISOLONE
     Dosage: 15 MG, QD
     Route: 048
  9. PREDNISOLONE. [Concomitant]
     Active Substance: PREDNISOLONE
     Dosage: 10 MG, QD
     Route: 048
     Dates: start: 20171013, end: 20171104
  10. PREDNISOLONE. [Concomitant]
     Active Substance: PREDNISOLONE
     Dosage: 15 MG, QD
     Route: 048
     Dates: start: 20171105, end: 20171213
  11. AMLODIPINE BESYLATE. [Concomitant]
     Active Substance: AMLODIPINE BESYLATE
     Indication: PRODUCT USED FOR UNKNOWN INDICATION
     Route: 065
  12. DEXAMETHASONE. [Concomitant]
     Active Substance: DEXAMETHASONE
     Indication: IMMUNE THROMBOCYTOPENIC PURPURA
     Dosage: 20 MG, QD
     Route: 048
     Dates: start: 20170901, end: 20170904
  13. REVOLADE [Suspect]
     Active Substance: ELTROMBOPAG
     Dosage: 50 MG, QD
     Route: 048
     Dates: start: 20170901, end: 20171011
  14. CYCLOSPORIN A [Concomitant]
     Active Substance: CYCLOSPORINE
     Dosage: 100 MG, BID
     Route: 048
  15. CYCLOSPORIN A [Concomitant]
     Active Substance: CYCLOSPORINE
     Dosage: 50 MG, BID
     Route: 048
     Dates: start: 20171127, end: 20180510
  16. ADALAT CC [Concomitant]
     Active Substance: NIFEDIPINE
     Indication: PRODUCT USED FOR UNKNOWN INDICATION
     Route: 065
  17. PROTAPHANE [Concomitant]
     Active Substance: INSULIN HUMAN
     Indication: DIABETES MELLITUS
     Dosage: 16 UNITS BEFORE BREAKFAST AND 4 UNITS AFTER BREAKFAST
     Route: 058
  18. ISOPHANE INSULIN [Concomitant]
     Active Substance: INSULIN NOS
     Dosage: 10 U, QD
     Route: 058
     Dates: start: 20171017, end: 20171017
  19. REVOLADE [Suspect]
     Active Substance: ELTROMBOPAG
     Dosage: 25 MG, QD
     Route: 048
     Dates: start: 20171127, end: 20171221
  20. REVOLADE [Suspect]
     Active Substance: ELTROMBOPAG
     Dosage: 25 MG, (SUN, MON, TUE, WED, FRI, SAT)
     Route: 048
     Dates: start: 20171222
  21. PREDNISOLONE. [Concomitant]
     Active Substance: PREDNISOLONE
     Dosage: 5 MG, QD
     Route: 048
     Dates: start: 20170704, end: 20170914
  22. PREDNISOLONE. [Concomitant]
     Active Substance: PREDNISOLONE
     Dosage: 7.5 MG, QD
     Route: 048
     Dates: start: 20170915, end: 20171011
  23. PREDNISOLONE. [Concomitant]
     Active Substance: PREDNISOLONE
     Dosage: 5 MG, QD
     Route: 048
     Dates: start: 20180427
  24. METFORMIN HCL [Concomitant]
     Active Substance: METFORMIN HYDROCHLORIDE
     Indication: DIABETES MELLITUS
     Dosage: 1000 MG, BID (FOR 1 WEEK)
     Route: 048
  25. PANTOPRAZOLE [Concomitant]
     Active Substance: PANTOPRAZOLE
     Indication: PRODUCT USED FOR UNKNOWN INDICATION
     Dosage: 40 MG, QD (FOR ONE WEEK)
     Route: 048
  26. ISOPHANE INSULIN [Concomitant]
     Active Substance: INSULIN NOS
     Dosage: 22 UNK, UNK
     Route: 058
     Dates: start: 20171015, end: 20171016
  27. PREDNISOLONE. [Concomitant]
     Active Substance: PREDNISOLONE
     Dosage: 10 MG, QD
     Route: 048
     Dates: start: 20180105, end: 20180118
  28. CYCLOSPORIN A [Concomitant]
     Active Substance: CYCLOSPORINE
     Indication: IMMUNE THROMBOCYTOPENIC PURPURA
     Dosage: 75 MG, BID
     Route: 048
  29. ACERTIL [Concomitant]
     Active Substance: PERINDOPRIL ARGININE
     Indication: PRODUCT USED FOR UNKNOWN INDICATION
     Route: 065
  30. DEXAMETHASONE. [Concomitant]
     Active Substance: DEXAMETHASONE
     Dosage: 20 MG, QD
     Route: 048
     Dates: start: 20171101, end: 20171104
  31. ISOPHANE INSULIN [Concomitant]
     Active Substance: INSULIN NOS
     Dosage: 16 U, QD
     Route: 065
     Dates: start: 20180427
  32. PREDNISOLONE. [Concomitant]
     Active Substance: PREDNISOLONE
     Dosage: 7.5 MG, QD
     Route: 048
     Dates: start: 20170620, end: 20170703
  33. PREDNISOLONE. [Concomitant]
     Active Substance: PREDNISOLONE
     Dosage: 7.5 MG, QD
     Route: 048
     Dates: start: 20180119, end: 20180426
  34. CYCLOSPORIN A [Concomitant]
     Active Substance: CYCLOSPORINE
     Dosage: 75 MG, BID
     Route: 048
     Dates: start: 20171011, end: 20171031
  35. ISOPHANE INSULIN [Concomitant]
     Active Substance: INSULIN NOS
     Dosage: 20 U, QD
     Route: 058
     Dates: start: 20171018, end: 20180317
  36. PREDNISOLONE. [Concomitant]
     Active Substance: PREDNISOLONE
     Indication: IMMUNE THROMBOCYTOPENIC PURPURA
     Dosage: 10 MG, QD
     Route: 048
  37. PREDNISOLONE. [Concomitant]
     Active Substance: PREDNISOLONE
     Dosage: 12.5 MG, QD
     Route: 048
     Dates: start: 20171215, end: 20180104
  38. CYCLOSPORIN A [Concomitant]
     Active Substance: CYCLOSPORINE
     Dosage: 50 MG, BID
     Route: 048
     Dates: start: 20170620, end: 20171010
  39. CYCLOSPORIN A [Concomitant]
     Active Substance: CYCLOSPORINE
     Dosage: 25 MG, BID
     Route: 048
     Dates: start: 20180511
  40. ISOPHANE INSULIN [Concomitant]
     Active Substance: INSULIN NOS
     Dosage: 22 U, QD
     Route: 058
     Dates: start: 20170620, end: 20171011
  41. ISOPHANE INSULIN [Concomitant]
     Active Substance: INSULIN NOS
     Dosage: 18 U, QD
     Route: 058
     Dates: start: 20180317, end: 20180426
  42. DEXAMETHASONE. [Concomitant]
     Active Substance: DEXAMETHASONE
     Dosage: 20 MG, QD
     Route: 048
     Dates: start: 20171124, end: 20171127
  43. MECOBALAMIN [Concomitant]
     Active Substance: METHYLCOBALAMIN
     Indication: PRODUCT USED FOR UNKNOWN INDICATION
     Dosage: 500 UG, TID (ONE WEEK)
     Route: 048
  44. ISOPHANE INSULIN [Concomitant]
     Active Substance: INSULIN NOS
     Dosage: 28 U, QD
     Route: 058
     Dates: start: 20171011, end: 20171015

REACTIONS (25)
  - Diarrhoea [Recovered/Resolved]
  - White blood cell count increased [Unknown]
  - Colitis [Recovered/Resolved]
  - Abdominal pain [Unknown]
  - Upper respiratory tract infection [Recovered/Resolved]
  - Contusion [Recovered/Resolved]
  - Haematocrit decreased [Unknown]
  - Abdominal pain lower [Recovered/Resolved]
  - Lower gastrointestinal haemorrhage [Recovered/Resolved]
  - Diverticulitis [Recovered/Resolved]
  - Red blood cell count decreased [Unknown]
  - Red cell distribution width increased [Unknown]
  - Clostridium test positive [Unknown]
  - Tenderness [Recovered/Resolved]
  - Pyrexia [Recovered/Resolved]
  - Deep vein thrombosis [Not Recovered/Not Resolved]
  - Activated partial thromboplastin time prolonged [Unknown]
  - Clostridium difficile colitis [Recovered/Resolved]
  - Mean platelet volume increased [Unknown]
  - Abdominal tenderness [Unknown]
  - Thrombocytopenia [Unknown]
  - International normalised ratio increased [Unknown]
  - Faeces discoloured [Unknown]
  - Peripheral swelling [Unknown]
  - Prothrombin time prolonged [Unknown]

NARRATIVE: CASE EVENT DATE: 20170901
